FAERS Safety Report 8251146-1 (Version None)
Quarter: 2012Q2

REPORT INFORMATION
  Report Type: 
  Country: None (occurrence: None)
  Receive Date: 20120402
  Receipt Date: 20120323
  Transmission Date: 20120825
  Serious: Yes (Other)
  Sender: FDA-Public Use
  Company Number: CA-CELGENEUS-028-C5013-11080706

PATIENT
  Sex: Male
  Weight: 91 kg

DRUGS (16)
  1. RAMIPRIL [Concomitant]
     Indication: HYPERTENSION
     Dosage: 10 MILLIGRAM
     Route: 048
  2. CIMETIDINE [Concomitant]
     Dosage: 400 MILLIGRAM
     Route: 048
  3. VITAMIN D [Concomitant]
     Indication: BONE DISORDER
     Dosage: 800 IU (INTERNATIONAL UNIT)
     Route: 048
     Dates: start: 20101207
  4. AREDIA [Concomitant]
     Dosage: 90 MILLIGRAM
     Route: 041
     Dates: start: 20110104
  5. AREDIA [Concomitant]
     Indication: BONE DISORDER
     Route: 041
  6. EXTRA STRENGTH TYLENOL [Concomitant]
     Indication: BACK PAIN
     Dosage: 2 TABLET
     Route: 048
     Dates: start: 20110315
  7. CALCIUM CARBONATE [Concomitant]
     Route: 048
  8. HYDROCHLOROTHIAZIDE [Concomitant]
     Indication: HYPERTENSION
     Dosage: 25 MILLIGRAM
     Route: 048
  9. CODEINE SULFATE [Concomitant]
     Indication: BACK PAIN
     Dosage: 30 MILLIGRAM
     Route: 048
     Dates: start: 20110315
  10. DEXAMETHASONE [Suspect]
     Indication: MULTIPLE MYELOMA
     Dosage: 20 MILLIGRAM
     Route: 065
     Dates: start: 20090728, end: 20101228
  11. AZITHROMYCIN [Concomitant]
     Indication: GOUT
     Dosage: 250 MILLIGRAM
     Route: 048
     Dates: start: 20100202
  12. EXTRA STRENGTH TYLENOL [Concomitant]
     Dosage: 2 TABLET
     Route: 048
     Dates: start: 20110315
  13. LENALIDOMIDE [Suspect]
     Indication: MULTIPLE MYELOMA
     Dosage: 25 MILLIGRAM
     Route: 048
     Dates: start: 20090728, end: 20101227
  14. GLICLAZIDE [Concomitant]
     Dosage: 30 MILLIGRAM
     Route: 048
     Dates: start: 20110515
  15. CALCIUM CARBONATE [Concomitant]
     Indication: BONE DISORDER
     Dosage: 1500 MILLIGRAM
     Route: 048
     Dates: start: 20101207
  16. CODEINE SULFATE [Concomitant]
     Indication: PAIN
     Dosage: 30 MILLIGRAM
     Route: 048
     Dates: start: 20110711

REACTIONS (2)
  - COLON CANCER [None]
  - FATIGUE [None]
